FAERS Safety Report 21968724 (Version 1)
Quarter: 2023Q1

REPORT INFORMATION
  Report Type: Report from Study
  Country: CO (occurrence: CO)
  Receive Date: 20230208
  Receipt Date: 20230208
  Transmission Date: 20230418
  Serious: Yes (Other)
  Sender: FDA-Public Use
  Company Number: CO-ALLERGAN-2303238US

PATIENT
  Sex: Female
  Weight: 67 kg

DRUGS (1)
  1. BOTULINUM TOXIN TYPE A [Suspect]
     Active Substance: BOTULINUM TOXIN TYPE A
     Indication: Migraine
     Dosage: 150 UNITS, SINGLE
     Route: 030
     Dates: start: 2022, end: 2022

REACTIONS (4)
  - Blindness [Recovered/Resolved]
  - Palpitations [Recovered/Resolved]
  - Eye pain [Recovered/Resolved]
  - Therapeutic response shortened [Unknown]

NARRATIVE: CASE EVENT DATE: 20221101
